FAERS Safety Report 8414585-1 (Version None)
Quarter: 2012Q2

REPORT INFORMATION
  Report Type: 
  Country: None (occurrence: None)
  Receive Date: 20120605
  Receipt Date: 20120517
  Transmission Date: 20120825
  Serious: Yes (Death, Other)
  Sender: FDA-Public Use
  Company Number: PHHY2010AU093823

PATIENT
  Sex: Female

DRUGS (2)
  1. ZOLEDRONOC ACID [Suspect]
     Route: 042
  2. ANTIBIOTICS [Suspect]

REACTIONS (5)
  - WEIGHT DECREASED [None]
  - EAR INFECTION [None]
  - GASTRIC CANCER [None]
  - DIZZINESS [None]
  - TOOTH DISORDER [None]
